FAERS Safety Report 9306831 (Version 2)
Quarter: 2013Q2

REPORT INFORMATION
  Report Type: Report from Study
  Country: US (occurrence: US)
  Receive Date: 20130523
  Receipt Date: 20130530
  Transmission Date: 20140414
  Serious: Yes (Hospitalization)
  Sender: FDA-Public Use
  Company Number: US-US-EMD SERONO, INC.-7212652

PATIENT
  Sex: Female
  Weight: 72 kg

DRUGS (14)
  1. REBIF [Suspect]
     Indication: PRODUCT USED FOR UNKNOWN INDICATION
     Route: 058
     Dates: start: 20080921
  2. XANAX [Concomitant]
     Indication: PRODUCT USED FOR UNKNOWN INDICATION
  3. AMBIEN [Concomitant]
     Indication: PRODUCT USED FOR UNKNOWN INDICATION
  4. WELLBUTRIN                         /00700501/ [Concomitant]
     Indication: PRODUCT USED FOR UNKNOWN INDICATION
  5. ADVAIR [Concomitant]
     Indication: COUGH
  6. TOPAMAX [Concomitant]
     Indication: MIGRAINE
  7. DILTIAZEM ER [Concomitant]
     Indication: PRODUCT USED FOR UNKNOWN INDICATION
  8. ADVIL                              /00109201/ [Concomitant]
     Indication: PRODUCT USED FOR UNKNOWN INDICATION
  9. FLEXERIL                           /00428402/ [Concomitant]
     Indication: PULMONARY CONGESTION
  10. NAPROXEN [Concomitant]
     Indication: PRODUCT USED FOR UNKNOWN INDICATION
  11. ROBITUSSIN                         /00048001/ [Concomitant]
     Indication: COUGH
  12. ALBUTEROL                          /00139501/ [Concomitant]
     Indication: PULMONARY CONGESTION
  13. MAXALT                             /01406501/ [Concomitant]
     Indication: MIGRAINE
  14. VENTOLIN                           /00139501/ [Concomitant]
     Indication: PRODUCT USED FOR UNKNOWN INDICATION

REACTIONS (5)
  - Pneumonia [Unknown]
  - Chronic obstructive pulmonary disease [Not Recovered/Not Resolved]
  - Aphonia [Unknown]
  - Hypersensitivity [Unknown]
  - Somnolence [Unknown]
